FAERS Safety Report 9925344 (Version 2)
Quarter: 2014Q2

REPORT INFORMATION
  Report Type: Spontaneous
  Country: US (occurrence: US)
  Receive Date: 20140226
  Receipt Date: 20140401
  Transmission Date: 20141212
  Serious: Yes (Other)
  Sender: FDA-Public Use
  Company Number: US-TEVA-464787USA

PATIENT
  Age: 28 Year
  Sex: Female
  Weight: 71.28 kg

DRUGS (5)
  1. PARAGARD 380A [Suspect]
     Indication: CONTRACEPTION
     Route: 015
     Dates: start: 20140128
  2. FLUOCINONIDE [Concomitant]
     Dosage: BID TO TID
  3. FLUOCINONIDE [Concomitant]
     Dosage: .2 PERCENT DAILY; PRN
  4. PRENATAL VITAMINS [Concomitant]
  5. CLINDAMYCIN HCL [Concomitant]
     Dosage: 900 MILLIGRAM DAILY; 1 CAPSULE TID

REACTIONS (3)
  - Device dislocation [Not Recovered/Not Resolved]
  - Dysmenorrhoea [Recovered/Resolved]
  - Vaginal haemorrhage [Recovered/Resolved]
